FAERS Safety Report 16410390 (Version 1)
Quarter: 2019Q3

REPORT INFORMATION
  Report Type: Spontaneous
  Country: US (occurrence: US)
  Receive Date: 20190607
  Receipt Date: 20190607
  Transmission Date: 20191004
  Serious: Yes (Disabling, Other)
  Sender: FDA-Public Use
  Company Number: None

PATIENT
  Age: 30 Year
  Sex: Female
  Weight: 85.5 kg

DRUGS (4)
  1. LUPRON [Suspect]
     Active Substance: LEUPROLIDE ACETATE
     Indication: ENDOMETRIOSIS
     Dosage: ?          QUANTITY:6 INJECTION(S);OTHER FREQUENCY:1X MO. FOR 6 MO.?
     Route: 058
     Dates: start: 20161207, end: 20170512
  2. ESCITALOPRAM 10 MG DAILY [Concomitant]
  3. LEVOTHYROXINE 150 MCG DAILY [Concomitant]
  4. METFORMIN 1000 MG DAILY [Concomitant]

REACTIONS (2)
  - Depression [None]
  - Amnesia [None]

NARRATIVE: CASE EVENT DATE: 20170501
